FAERS Safety Report 5625908-0 (Version None)
Quarter: 2008Q1

REPORT INFORMATION
  Report Type: 
  Country: None (occurrence: None)
  Receive Date: 20080214
  Receipt Date: 20080201
  Transmission Date: 20080703
  Serious: Yes (Hospitalization)
  Sender: FDA-Public Use
  Company Number: DE-AMGEN-US264409

PATIENT
  Age: 54 Year
  Sex: Male

DRUGS (1)
  1. ENBREL [Suspect]
     Indication: DRUG USE FOR UNKNOWN INDICATION
     Route: 058
     Dates: start: 20071115, end: 20080101

REACTIONS (4)
  - EAR INFECTION [None]
  - EAR TUBE INSERTION [None]
  - MYRINGOPLASTY [None]
  - STREPTOCOCCAL INFECTION [None]
